FAERS Safety Report 20104306 (Version 1)
Quarter: 2021Q4

REPORT INFORMATION
  Report Type: Spontaneous
  Country: US (occurrence: None)
  Receive Date: 20211123
  Receipt Date: 20211123
  Transmission Date: 20220303
  Serious: Yes (Hospitalization)
  Sender: FDA-Public Use
  Company Number: None

PATIENT
  Sex: Male

DRUGS (18)
  1. ENBREL [Suspect]
     Active Substance: ETANERCEPT
     Indication: Rheumatoid arthritis
     Dosage: FREQUENCY : WEEKLY;?
     Route: 058
     Dates: start: 20181221
  2. ACETAMIN [Concomitant]
  3. AMLODIPINE [Concomitant]
     Active Substance: AMLODIPINE BESYLATE
  4. ATORVASTATIN [Concomitant]
  5. CALCIUM [Concomitant]
     Active Substance: CALCIUM
  6. CHOLECALIF [Concomitant]
  7. COREG [Concomitant]
  8. FLOMAX [Concomitant]
  9. FOLIC AC [Concomitant]
  10. GABAPENTIN [Concomitant]
  11. PLAQUENIL [Concomitant]
     Active Substance: HYDROXYCHLOROQUINE SULFATE
  12. PLAVIX [Concomitant]
  13. POLYVINYL [Concomitant]
  14. PROTONIX [Concomitant]
  15. SULFASALAZIN [Concomitant]
  16. TORSEMIDE [Concomitant]
  17. VELATASSA [Concomitant]
  18. VITAMIN D3 [Concomitant]

REACTIONS (2)
  - Diabetes mellitus [None]
  - Therapy interrupted [None]
